FAERS Safety Report 4912996-X (Version None)
Quarter: 2006Q1

REPORT INFORMATION
  Report Type: 
  Country: None (occurrence: None)
  Receive Date: 20060210
  Receipt Date: 20051026
  Transmission Date: 20060701
  Serious: Yes (Death, Life-Threatening, Hospitalization, Other)
  Sender: FDA-Public Use
  Company Number: MC200500894

PATIENT
  Age: 72 Year
  Sex: Male
  Weight: 105.2 kg

DRUGS (11)
  1. BIVALIRUDIN (BIVALIRUDIN) INJECTION [Suspect]
     Dosage: SEE IMAGE
     Dates: start: 20050830, end: 20050830
  2. BIVALIRUDIN (BIVALIRUDIN) INJECTION [Suspect]
     Dosage: SEE IMAGE
     Dates: start: 20050830, end: 20050830
  3. INTEGRILIN [Concomitant]
  4. GLYBURIDE [Concomitant]
  5. PROTONIX [Concomitant]
  6. MVI (VITAMINS NOS) [Concomitant]
  7. PREDNISONE TAB [Concomitant]
  8. COREG [Concomitant]
  9. COUMADIN [Concomitant]
  10. PLAVIX [Concomitant]
  11. ASPIRIN [Concomitant]

REACTIONS (9)
  - ARTERIAL HAEMORRHAGE [None]
  - CARDIO-RESPIRATORY ARREST [None]
  - HAEMATOMA [None]
  - HYPOTENSION [None]
  - INCORRECT DOSE ADMINISTERED [None]
  - POST PROCEDURAL HAEMATOMA [None]
  - RENAL IMPAIRMENT [None]
  - SCROTAL HAEMATOMA [None]
  - SHOCK HAEMORRHAGIC [None]
